FAERS Safety Report 16511004 (Version 1)
Quarter: 2019Q3

REPORT INFORMATION
  Report Type: Spontaneous
  Country: US (occurrence: US)
  Receive Date: 20190701
  Receipt Date: 20190701
  Transmission Date: 20191004
  Serious: No
  Sender: FDA-Public Use
  Company Number: US-NOVOPROD-660274

PATIENT
  Age: 37 Year
  Sex: Male

DRUGS (1)
  1. MACRILEN [Suspect]
     Active Substance: MACIMORELIN
     Indication: GROWTH HORMONE DEFICIENCY
     Dosage: 130 ML
     Route: 048
     Dates: start: 20190423, end: 20190423

REACTIONS (6)
  - Feeling hot [Recovered/Resolved]
  - Dizziness [Recovered/Resolved]
  - Flushing [Recovered/Resolved]
  - Nausea [Recovered/Resolved]
  - Bradycardia [Recovered/Resolved]
  - Fatigue [Recovered/Resolved]

NARRATIVE: CASE EVENT DATE: 20190423
